FAERS Safety Report 6111416-X (Version None)
Quarter: 2009Q1

REPORT INFORMATION
  Report Type: 
  Country: None (occurrence: None)
  Receive Date: 20090309
  Receipt Date: 20090225
  Transmission Date: 20090719
  Serious: Yes (Hospitalization)
  Sender: FDA-Public Use
  Company Number: MEDI-0007925

PATIENT
  Age: 60 Year
  Sex: Female
  Weight: 45 kg

DRUGS (7)
  1. ETHYOL [Suspect]
     Indication: PROPHYLAXIS
     Dosage: 200 MG/M2, 5 IN 1 D, INTRAVENOUS
     Route: 042
     Dates: start: 20081208, end: 20090115
  2. ETHYOL [Suspect]
     Indication: RADIOTHERAPY
     Dosage: 200 MG/M2, 5 IN 1 D, INTRAVENOUS
     Route: 042
     Dates: start: 20081208, end: 20090115
  3. RADIATION THERAPY [Concomitant]
  4. ONDANSETRON HCL [Concomitant]
  5. DURAGESIC-100 [Concomitant]
  6. FLUCONAZOLE [Concomitant]
  7. CISPLATIN [Concomitant]

REACTIONS (18)
  - ANAEMIA [None]
  - ASTHENIA [None]
  - BLOOD CALCIUM DECREASED [None]
  - CONFUSIONAL STATE [None]
  - GENERAL PHYSICAL HEALTH DETERIORATION [None]
  - HYPOCALCAEMIA [None]
  - HYPOMAGNESAEMIA [None]
  - INADEQUATE ANALGESIA [None]
  - LEUKOPENIA [None]
  - METABOLIC DISORDER [None]
  - NYSTAGMUS [None]
  - PETECHIAE [None]
  - PYREXIA [None]
  - RENAL IMPAIRMENT [None]
  - RESPIRATORY TRACT INFECTION [None]
  - THROMBOCYTOPENIA [None]
  - TREMOR [None]
  - VOMITING [None]
